FAERS Safety Report 18868257 (Version 2)
Quarter: 2021Q1

REPORT INFORMATION
  Report Type: Spontaneous
  Country: US (occurrence: US)
  Receive Date: 20210209
  Receipt Date: 20210219
  Transmission Date: 20210420
  Serious: Yes (Other)
  Sender: FDA-Public Use
  Company Number: US-ASTRAZENECA-2021A030283

PATIENT
  Age: 70 Year
  Sex: Male

DRUGS (2)
  1. NOVOLIN NOS [Concomitant]
     Active Substance: INSULIN HUMAN
     Dosage: ON A SLIDING SCALE
  2. BYDUREON BCISE [Suspect]
     Active Substance: EXENATIDE
     Indication: TYPE 2 DIABETES MELLITUS
     Dosage: ONCE A WEEK
     Route: 058

REACTIONS (10)
  - Migraine [Unknown]
  - Weight increased [Unknown]
  - Injection site haemorrhage [Unknown]
  - Weight decreased [Unknown]
  - Stress [Unknown]
  - Pain [Unknown]
  - Injection site pain [Unknown]
  - Injury [Unknown]
  - Device leakage [Unknown]
  - Blood glucose increased [Unknown]

NARRATIVE: CASE EVENT DATE: 2019
